FAERS Safety Report 19908230 (Version 1)
Quarter: 2021Q4

REPORT INFORMATION
  Report Type: Spontaneous
  Country: CA (occurrence: CA)
  Receive Date: 20211001
  Receipt Date: 20211001
  Transmission Date: 20220303
  Serious: Yes (Hospitalization)
  Sender: FDA-Public Use
  Company Number: CA-OTSUKA-2021_033091

PATIENT
  Age: 18 Year
  Sex: Male

DRUGS (4)
  1. ABILIFY MAINTENA [Suspect]
     Active Substance: ARIPIPRAZOLE
     Indication: Psychotic symptom
     Dosage: UNK
     Route: 065
  2. ABILIFY [Suspect]
     Active Substance: ARIPIPRAZOLE
     Indication: Psychotic symptom
     Dosage: 2 MG, QD (FOR 4 DAYS)
     Route: 048
     Dates: start: 202107
  3. ABILIFY [Suspect]
     Active Substance: ARIPIPRAZOLE
     Dosage: 5 MG, QD (FOR 7 DAYS)
     Route: 048
     Dates: start: 202107
  4. ABILIFY [Suspect]
     Active Substance: ARIPIPRAZOLE
     Dosage: 10 MG, QD (FOR SEVERAL DAYS)
     Route: 048
     Dates: start: 202107

REACTIONS (11)
  - Muscle contractions involuntary [Unknown]
  - Feeling abnormal [Unknown]
  - Abnormal behaviour [Unknown]
  - Tongue disorder [Unknown]
  - Panic reaction [Unknown]
  - Musculoskeletal stiffness [Unknown]
  - Musculoskeletal stiffness [Unknown]
  - Pain [Unknown]
  - Dystonia [Unknown]
  - Drug ineffective [Unknown]
  - Product use in unapproved indication [Unknown]
